FAERS Safety Report 8261429-7 (Version None)
Quarter: 2012Q2

REPORT INFORMATION
  Report Type: 
  Country: None (occurrence: None)
  Receive Date: 20120405
  Receipt Date: 20120327
  Transmission Date: 20120825
  Serious: Yes (Hospitalization, Other)
  Sender: FDA-Public Use
  Company Number: FR-PFIZER INC-2012064867

PATIENT
  Age: 46 Year
  Sex: Male

DRUGS (10)
  1. PANTOPRAZOLE SODIUM [Suspect]
     Dosage: 20 MG, 2X/DAY
     Route: 048
     Dates: end: 20120114
  2. PANTOPRAZOLE SODIUM [Suspect]
     Dosage: 20 MG, 2X/DAY
     Route: 048
     Dates: start: 20120101, end: 20120120
  3. AMLODIPINE [Suspect]
     Dosage: UNK
     Dates: end: 20120114
  4. AMLODIPINE [Suspect]
     Dosage: UNK
     Route: 048
     Dates: start: 20120201
  5. GAVISCON [Suspect]
     Dosage: UNK
     Route: 048
     Dates: end: 20120114
  6. VENTOLIN [Suspect]
     Indication: DYSPNOEA
     Dosage: UNK
     Route: 055
     Dates: end: 20120114
  7. AMLODIPINE BESYLATE AND OLMESARTAN MEDOXOMIL [Suspect]
     Dosage: UNK
     Route: 048
     Dates: end: 20120114
  8. PANTOPRAZOLE SODIUM [Suspect]
     Dosage: UNK
     Route: 048
     Dates: start: 20120201, end: 20120206
  9. BACTRIM [Suspect]
     Indication: PNEUMOCYSTIS JIROVECI PNEUMONIA
     Dosage: UNK
     Dates: start: 20120114, end: 20120116
  10. LESCOL [Suspect]
     Dosage: UNK
     Route: 048
     Dates: end: 20120114

REACTIONS (6)
  - RESPIRATORY FAILURE [None]
  - RENAL FAILURE ACUTE [None]
  - HYPOXIA [None]
  - EOSINOPHILIC PNEUMONIA [None]
  - THROMBOCYTOPENIA [None]
  - ACUTE RESPIRATORY DISTRESS SYNDROME [None]
